FAERS Safety Report 9498769 (Version 1)
Quarter: 2013Q3

REPORT INFORMATION
  Report Type: Spontaneous
  Country: PT (occurrence: PT)
  Receive Date: 20130904
  Receipt Date: 20130904
  Transmission Date: 20140515
  Serious: Yes (Life-Threatening, Disabling)
  Sender: FDA-Public Use
  Company Number: PHHY2013PT094801

PATIENT
  Age: 24 Year
  Sex: Male
  Weight: 79 kg

DRUGS (4)
  1. CLARITHROMYCIN SANDOZ [Suspect]
     Indication: TONSILLITIS
     Dosage: 500 MG Q12H
     Route: 048
     Dates: start: 20130807, end: 20130814
  2. IBUPROFENO [Concomitant]
     Indication: TONSILLITIS
     Dosage: 600 MG
     Route: 048
     Dates: start: 20130807, end: 20130814
  3. BEN-U-RON [Concomitant]
     Indication: TONSILLITIS
     Dosage: 1000 MG
     Route: 048
     Dates: start: 20130807, end: 20130814
  4. ELUDRIL [Concomitant]
     Indication: TONSILLITIS
     Dosage: 1 DF
     Route: 002
     Dates: start: 20130807, end: 20130812

REACTIONS (6)
  - Toxic epidermal necrolysis [Recovered/Resolved]
  - Erythema [Recovered/Resolved]
  - Pyrexia [Recovered/Resolved]
  - Infection [Recovered/Resolved]
  - Blister [Recovered/Resolved]
  - Pain [Recovered/Resolved]
